FAERS Safety Report 20666760 (Version 3)
Quarter: 2022Q2

REPORT INFORMATION
  Report Type: Spontaneous
  Country: US (occurrence: None)
  Receive Date: 20220403
  Receipt Date: 20220510
  Transmission Date: 20220721
  Serious: No
  Sender: FDA-Public Use
  Company Number: 2022A124345

PATIENT
  Sex: Female

DRUGS (4)
  1. BEVESPI AEROSPHERE [Suspect]
     Active Substance: FORMOTEROL FUMARATE\GLYCOPYRROLATE
     Indication: Emphysema
     Dosage: (9MCG/4.8MCG) 2 INHALATIONS TWICE A DAY
     Route: 055
  2. ALBUTEROL [Concomitant]
     Active Substance: ALBUTEROL
  3. UMECLIDINIUM BROMIDE\VILANTEROL TRIFENATATE [Concomitant]
     Active Substance: UMECLIDINIUM BROMIDE\VILANTEROL TRIFENATATE
  4. ZYRTEC [Concomitant]
     Active Substance: CETIRIZINE HYDROCHLORIDE

REACTIONS (3)
  - Nasopharyngitis [Recovering/Resolving]
  - Product dose omission issue [Unknown]
  - Device delivery system issue [Unknown]
